FAERS Safety Report 5608844-5 (Version None)
Quarter: 2008Q1

REPORT INFORMATION
  Report Type: 
  Country: None (occurrence: None)
  Receive Date: 20080131
  Receipt Date: 20080125
  Transmission Date: 20080703
  Serious: Yes (Other)
  Sender: FDA-Public Use
  Company Number: US-JNJFOC-20080106481

PATIENT
  Sex: Male

DRUGS (5)
  1. REMICADE [Suspect]
     Indication: CROHN'S DISEASE
     Route: 042
  2. VITAMIN B-12 [Concomitant]
     Indication: IRON DEFICIENCY
  3. SYNTHROID [Concomitant]
     Indication: HYPOTHYROIDISM
  4. CALCIUM GLUCONATE [Concomitant]
     Indication: MEDICAL DIET
  5. M.V.I. [Concomitant]
     Indication: NUTRITIONAL SUPPORT

REACTIONS (5)
  - BLOOD PRESSURE DECREASED [None]
  - EYE PRURITUS [None]
  - INFUSION RELATED REACTION [None]
  - PULSE ABSENT [None]
  - SYNCOPE [None]
